FAERS Safety Report 9395057 (Version 1)
Quarter: 2013Q3

REPORT INFORMATION
  Report Type: Report from Study
  Country: CA (occurrence: CA)
  Receive Date: 20130711
  Receipt Date: 20130711
  Transmission Date: 20140515
  Serious: Yes (Other)
  Sender: FDA-Public Use
  Company Number: CA-JNJFOC-20130704039

PATIENT
  Age: 46 Year
  Sex: Female
  Weight: 74 kg

DRUGS (10)
  1. REMICADE [Suspect]
     Indication: CROHN^S DISEASE
     Route: 042
     Dates: start: 20130703
  2. REMICADE [Suspect]
     Indication: CROHN^S DISEASE
     Route: 042
     Dates: start: 20120621
  3. B12 [Concomitant]
     Route: 065
  4. TECTA [Concomitant]
     Route: 065
  5. UNSPECIFIED BIRTH CONTROL [Concomitant]
     Route: 065
  6. PAXIL [Concomitant]
     Dosage: DAILY
     Route: 065
  7. AZATHIOPRINE [Concomitant]
     Route: 065
  8. CALCIUM [Concomitant]
     Route: 065
  9. ZANTAC [Concomitant]
     Route: 065
  10. OMEGA VITAMIN [Concomitant]
     Dosage: DAILY
     Route: 065

REACTIONS (2)
  - Gastrointestinal ulcer [Recovering/Resolving]
  - Diarrhoea [Recovering/Resolving]
